FAERS Safety Report 21902923 (Version 1)
Quarter: 2023Q1

REPORT INFORMATION
  Report Type: Report from Study
  Country: US (occurrence: US)
  Receive Date: 20230124
  Receipt Date: 20230124
  Transmission Date: 20230417
  Serious: No
  Sender: FDA-Public Use
  Company Number: US-002147023-NVSC2023US011808

PATIENT
  Sex: Male

DRUGS (1)
  1. COSENTYX [Suspect]
     Active Substance: SECUKINUMAB
     Indication: Psoriasis
     Dosage: 300 MG, OTHER, INJECT 2 PENS (150 MG/ML) SUBCUTANEOUSLY EVERY 4 WEEKS
     Route: 058
     Dates: start: 20171219

REACTIONS (5)
  - Arthralgia [Recovering/Resolving]
  - COVID-19 [Recovering/Resolving]
  - Rash [Recovering/Resolving]
  - Nail disorder [Recovering/Resolving]
  - Skin lesion [Recovering/Resolving]
